FAERS Safety Report 9355999 (Version 1)
Quarter: 2013Q2

REPORT INFORMATION
  Report Type: Spontaneous
  Country: GB (occurrence: GB)
  Receive Date: 20130619
  Receipt Date: 20130619
  Transmission Date: 20140414
  Serious: Yes (Other)
  Sender: FDA-Public Use
  Company Number: GB-TEVA-413214ISR

PATIENT
  Age: 75 Year
  Sex: Female
  Weight: 97 kg

DRUGS (4)
  1. ATORVASTATIN [Suspect]
     Indication: BLOOD CHOLESTEROL INCREASED
     Dosage: 40 MILLIGRAM DAILY;
     Route: 048
     Dates: start: 20130201, end: 20130228
  2. CANDESARTAN [Concomitant]
  3. DOXAZOSIN [Concomitant]
  4. OMEPRAZOLE [Concomitant]

REACTIONS (2)
  - Amnesia [Recovered/Resolved with Sequelae]
  - Confusional state [Recovering/Resolving]
